FAERS Safety Report 15370205 (Version 3)
Quarter: 2018Q4

REPORT INFORMATION
  Report Type: Spontaneous
  Country: FR (occurrence: FR)
  Receive Date: 20180911
  Receipt Date: 20181017
  Transmission Date: 20190204
  Serious: Yes (Life-Threatening, Other)
  Sender: FDA-Public Use
  Company Number: FR-AUROBINDO-AUR-APL-2018-045116

PATIENT
  Age: 47 Year
  Sex: Male

DRUGS (14)
  1. DOXORUBICIN [Suspect]
     Active Substance: DOXORUBICIN
     Indication: FOLLICLE CENTRE LYMPHOMA, FOLLICULAR GRADE I, II, III STAGE IV
     Dosage: 25 MILLIGRAM/SQ. METER, ONCE A DAY, EVERY 28 DAYS
     Route: 042
     Dates: start: 2000, end: 2001
  2. OXALIPLATIN. [Suspect]
     Active Substance: OXALIPLATIN
     Indication: FOLLICLE CENTRE LYMPHOMA, FOLLICULAR GRADE I, II, III STAGE IV
     Dosage: 100 MILLIGRAM/SQ. METER
     Route: 042
     Dates: start: 201409, end: 201410
  3. CYTARABINE. [Suspect]
     Active Substance: CYTARABINE
     Indication: FOLLICLE CENTRE LYMPHOMA, FOLLICULAR GRADE I, II, III STAGE IV
     Dosage: 200 MILLIGRAM/SQ. METER, DAILY
     Route: 042
     Dates: start: 20141114, end: 20141117
  4. MABTHERA [Suspect]
     Active Substance: RITUXIMAB
     Dosage: 375 MG/M2
     Route: 042
     Dates: start: 201409, end: 201410
  5. INTRON A [Suspect]
     Active Substance: INTERFERON ALFA-2B
     Indication: FOLLICLE CENTRE LYMPHOMA, FOLLICULAR GRADE I, II, III STAGE IV
     Dosage: 5 MILLION IU X 3/ WEEK
     Route: 058
     Dates: start: 2000, end: 2001
  6. CYCLOPHOSPHAMIDE. [Suspect]
     Active Substance: CYCLOPHOSPHAMIDE
     Indication: FOLLICLE CENTRE LYMPHOMA, FOLLICULAR GRADE I, II, III STAGE IV
     Dosage: 600 MILLIGRAM/SQ. METER, ONCE A DAY
     Route: 042
     Dates: start: 2000, end: 2001
  7. MELPHALAN. [Suspect]
     Active Substance: MELPHALAN
     Indication: FOLLICLE CENTRE LYMPHOMA, FOLLICULAR GRADE I, II, III STAGE IV
     Dosage: 140 MG/M2
     Route: 042
     Dates: start: 20141118, end: 20141118
  8. MABTHERA [Suspect]
     Active Substance: RITUXIMAB
     Indication: FOLLICLE CENTRE LYMPHOMA, FOLLICULAR GRADE I, II, III STAGE IV
     Dosage: 375 MG/M2
     Route: 042
     Dates: start: 201309, end: 201402
  9. CYTARABINE. [Suspect]
     Active Substance: CYTARABINE
     Dosage: 200 MILLIGRAM/KILOGRAM
     Route: 042
  10. ETOPOSIDE. [Suspect]
     Active Substance: ETOPOSIDE
     Indication: FOLLICLE CENTRE LYMPHOMA, FOLLICULAR GRADE I, II, III STAGE IV
     Dosage: 200 MILLIGRAM/SQ. METER, DAILY
     Route: 042
     Dates: start: 20141114, end: 20171117
  11. BENDAMUSTINE                       /01263302/ [Suspect]
     Active Substance: BENDAMUSTINE HYDROCHLORIDE
     Indication: FOLLICLE CENTRE LYMPHOMA, FOLLICULAR GRADE I, II, III STAGE IV
     Dosage: 70 MILLIGRAM/SQ. METER
     Route: 042
     Dates: start: 201309, end: 201402
  12. CARMUSTINE. [Suspect]
     Active Substance: CARMUSTINE
     Indication: FOLLICLE CENTRE LYMPHOMA, FOLLICULAR GRADE I, II, III STAGE IV
     Dosage: 300 MG/M2
     Route: 042
     Dates: start: 20141113, end: 20141113
  13. CYTARABINE. [Suspect]
     Active Substance: CYTARABINE
     Dosage: 200 MILLIGRAM/KILOGRAM
     Route: 042
     Dates: start: 201409, end: 201410
  14. ETOPOSIDE. [Suspect]
     Active Substance: ETOPOSIDE
     Dosage: 100 MG/M2
     Route: 042
     Dates: start: 2000, end: 2001

REACTIONS (2)
  - Myelodysplastic syndrome [Not Recovered/Not Resolved]
  - Off label use [Unknown]

NARRATIVE: CASE EVENT DATE: 201808
